FAERS Safety Report 10227279 (Version 2)
Quarter: 2014Q2

REPORT INFORMATION
  Report Type: Spontaneous
  Country: IT (occurrence: None)
  Receive Date: 20140606
  Receipt Date: 20140617
  Transmission Date: 20141212
  Serious: Yes (Hospitalization)
  Sender: FDA-Public Use
  Company Number: FK201402069

PATIENT
  Age: 81 Year
  Sex: Male

DRUGS (8)
  1. CEFTRIAXON [Suspect]
     Indication: HYPERPYREXIA
     Route: 030
     Dates: start: 20140423, end: 20140423
  2. LASIX (FUROSEMIDE) [Concomitant]
  3. SPIRIVA [Concomitant]
  4. ALIFLUS [Concomitant]
  5. PLAVIX [Concomitant]
  6. BISOPROLOL (BISOPROLOL) [Concomitant]
  7. AMIODARONE HYDROCHLORIDE (AMIODARONE HYDROCHLORIDE) [Concomitant]
  8. POTASSIUM CANRENOATE [Concomitant]

REACTIONS (6)
  - Dyspnoea [None]
  - Rash [None]
  - Wheezing [None]
  - Hypoxia [None]
  - Hypocapnia [None]
  - Blood lactic acid increased [None]
